FAERS Safety Report 10542388 (Version 3)
Quarter: 2014Q4

REPORT INFORMATION
  Report Type: Spontaneous
  Country: AU (occurrence: AU)
  Receive Date: 20141026
  Receipt Date: 20141216
  Transmission Date: 20150529
  Serious: Yes (Other)
  Sender: FDA-Public Use
  Company Number: AU-IPSEN BIOPHARMACEUTICALS, INC.-2014-5597

PATIENT
  Age: 31 Year
  Sex: Male

DRUGS (2)
  1. DYSPORT [Suspect]
     Active Substance: ABOBOTULINUMTOXINA
     Indication: SKIN COSMETIC PROCEDURE
     Dosage: NOT REPORTED
     Route: 065
     Dates: start: 201212, end: 201212
  2. BOTULINUM TOXIN TYPE A NOS [Suspect]
     Active Substance: BOTULINUM TOXIN TYPE A
     Indication: SKIN COSMETIC PROCEDURE
     Dosage: NOT REPORTED
     Route: 065
     Dates: start: 201312, end: 201312

REACTIONS (2)
  - Eyelid ptosis [Not Recovered/Not Resolved]
  - Brow ptosis [Not Recovered/Not Resolved]

NARRATIVE: CASE EVENT DATE: 201212
